FAERS Safety Report 26020221 (Version 1)
Quarter: 2025Q4

REPORT INFORMATION
  Report Type: Spontaneous
  Country: US (occurrence: US)
  Receive Date: 20251110
  Receipt Date: 20251110
  Transmission Date: 20260118
  Serious: No
  Sender: GALPHARM INTERNATIONAL
  Company Number: US-PERRIGO-25US006243

PATIENT
  Age: 62 Year
  Sex: Female
  Weight: 81.633 kg

DRUGS (2)
  1. POLYETHYLENE GLYCOL 3350 [Suspect]
     Active Substance: POLYETHYLENE GLYCOL 3350
     Indication: Bowel preparation
     Dosage: UNKNOWN, TWICE
     Route: 048
     Dates: start: 20250424, end: 20250424
  2. DULCOLAX (BISACODYL) [Concomitant]
     Active Substance: BISACODYL
     Indication: Bowel preparation
     Dosage: 2 TABLETS, TWICE
     Route: 065
     Dates: start: 20250424, end: 20250424

REACTIONS (5)
  - Paraesthesia oral [Recovered/Resolved]
  - Flushing [Unknown]
  - Urticaria [Recovered/Resolved]
  - Hypersensitivity [Recovered/Resolved]
  - Off label use [Recovered/Resolved]

NARRATIVE: CASE EVENT DATE: 20250424
